FAERS Safety Report 7125798-3 (Version None)
Quarter: 2010Q4

REPORT INFORMATION
  Report Type: 
  Country: None (occurrence: None)
  Receive Date: 20101129
  Receipt Date: 20101110
  Transmission Date: 20110411
  Serious: Yes (Death)
  Sender: FDA-Public Use
  Company Number: B0686110A

PATIENT
  Age: 73 Year
  Sex: Male

DRUGS (8)
  1. BECLOMETHASONE DIPROPIONATE [Suspect]
     Indication: INHALATION THERAPY
     Route: 055
  2. METHYLPREDNISOLONE [Suspect]
     Indication: INHALATION THERAPY
     Dosage: 8MG PER DAY
     Route: 065
  3. ALCOHOL [Concomitant]
  4. AMOXICILLIN AND CLAVULANATE POTASSIUM [Concomitant]
  5. ACETYLCYSTEINE [Concomitant]
  6. ANALGESIC [Concomitant]
  7. ANTIPYRETIC [Concomitant]
  8. PARACETAMOL [Concomitant]

REACTIONS (12)
  - ALANINE AMINOTRANSFERASE INCREASED [None]
  - ASPARTATE AMINOTRANSFERASE INCREASED [None]
  - ATRIAL FIBRILLATION [None]
  - BLOOD LACTATE DEHYDROGENASE INCREASED [None]
  - BLOOD PH INCREASED [None]
  - BLOOD PRESSURE SYSTOLIC INCREASED [None]
  - BRONCHIAL OBSTRUCTION [None]
  - HEPATIC ATROPHY [None]
  - HEPATIC HAEMORRHAGE [None]
  - HEPATIC NECROSIS [None]
  - HERPES SIMPLEX HEPATITIS [None]
  - RESPIRATORY DISTRESS [None]
